FAERS Safety Report 16960394 (Version 1)
Quarter: 2019Q4

REPORT INFORMATION
  Report Type: Spontaneous
  Country: JP (occurrence: JP)
  Receive Date: 20191025
  Receipt Date: 20191025
  Transmission Date: 20200122
  Serious: Yes (Other)
  Sender: FDA-Public Use
  Company Number: JP-SUN PHARMACEUTICAL INDUSTRIES LTD-2019RR-225420

PATIENT
  Age: 56 Year
  Sex: Male

DRUGS (12)
  1. FLUOROURACIL. [Suspect]
     Active Substance: FLUOROURACIL
     Dosage: 3 COURSES OF MODIFIED FOLFIRI + BEVACIZUMAB
     Route: 065
  2. CALCIUM FOLINAT [Suspect]
     Active Substance: LEUCOVORIN CALCIUM
     Indication: RECTAL CANCER METASTATIC
     Dosage: 10 COURSES OF MODIFIED FOLFOX 6 + BEVACIZUMAB
     Route: 065
  3. IRINOTECAN [Suspect]
     Active Substance: IRINOTECAN
     Indication: RECTAL CANCER
     Dosage: 3 COURSES OF MODIFIED FOLFIRI + BEVACIZUMAB
     Route: 065
  4. BEVACIZUMAB. [Suspect]
     Active Substance: BEVACIZUMAB
     Indication: RECTAL CANCER METASTATIC
     Dosage: 10 COURSES OF MODIFIED FOLFOX 6 + BEVACIZUMAB
     Route: 065
  5. CALCIUM FOLINAT [Suspect]
     Active Substance: LEUCOVORIN CALCIUM
     Dosage: 3 COURSES OF MODIFIED FOLFIRI + BEVACIZUMAB
     Route: 065
  6. CALCIUM FOLINAT [Suspect]
     Active Substance: LEUCOVORIN CALCIUM
     Dosage: 2 COURSES OF MODIFIED FOLFIRI + AFLIBERCEPT
     Route: 065
  7. IRINOTECAN [Suspect]
     Active Substance: IRINOTECAN
     Dosage: 2 COURSES OF MODIFIED FOLFIRI + AFLIBERCEPT
     Route: 065
  8. FLUOROURACIL. [Suspect]
     Active Substance: FLUOROURACIL
     Indication: RECTAL CANCER METASTATIC
     Dosage: 10 COURSES OF MODIFIED FOLFOX 6 + BEVACIZUMAB
     Route: 065
  9. OXALIPLATIN. [Suspect]
     Active Substance: OXALIPLATIN
     Indication: RECTAL CANCER METASTATIC
     Dosage: 10 COURSES OF MODIFIED FOLFOX 6 + BEVACIZUMAB
     Route: 065
  10. FLUOROURACIL. [Suspect]
     Active Substance: FLUOROURACIL
     Dosage: 2 COURSES OF MODIFIED FOLFIRI + AFLIBERCEPT
     Route: 065
  11. BEVACIZUMAB. [Suspect]
     Active Substance: BEVACIZUMAB
     Dosage: 3 COURSES OF MODIFIED FOLFIRI + BEVACIZUMAB
     Route: 065
  12. AFLIBERCEPT [Suspect]
     Active Substance: AFLIBERCEPT
     Indication: RECTAL CANCER METASTATIC
     Dosage: 2 COURSES OF MODIFIED FOLFIRI + AFLIBERCEPT
     Route: 065

REACTIONS (2)
  - Skin ulcer [Unknown]
  - Disease progression [Unknown]
